FAERS Safety Report 16265760 (Version 4)
Quarter: 2019Q4

REPORT INFORMATION
  Report Type: Report from Study
  Country: US (occurrence: US)
  Receive Date: 20190502
  Receipt Date: 20191227
  Transmission Date: 20200122
  Serious: Yes (Other)
  Sender: FDA-Public Use
  Company Number: PHEH2019US018094

PATIENT
  Sex: Female

DRUGS (1)
  1. TASIGNA [Suspect]
     Active Substance: NILOTINIB
     Indication: PRODUCT USED FOR UNKNOWN INDICATION
     Route: 065

REACTIONS (5)
  - Emphysema [Unknown]
  - Dyspnoea [Unknown]
  - Measles [Unknown]
  - Anger [Unknown]
  - Hypoacusis [Unknown]

NARRATIVE: CASE EVENT DATE: 2008
